FAERS Safety Report 15712763 (Version 2)
Quarter: 2019Q1

REPORT INFORMATION
  Report Type: Spontaneous
  Country: JP (occurrence: JP)
  Receive Date: 20181212
  Receipt Date: 20190118
  Transmission Date: 20190417
  Serious: Yes (Other)
  Sender: FDA-Public Use
  Company Number: JP-TEVA-2018-JP-987395

PATIENT
  Age: 74 Year
  Sex: Female

DRUGS (9)
  1. NEODOPASTON [Concomitant]
     Active Substance: CARBIDOPA\LEVODOPA
     Route: 065
  2. TAKECAB [Concomitant]
     Active Substance: VONOPRAZAN FUMURATE
  3. DOMPERIDONE [Concomitant]
     Active Substance: DOMPERIDONE
  4. AMARYL [Concomitant]
     Active Substance: GLIMEPIRIDE
  5. AZILECT [Suspect]
     Active Substance: RASAGILINE MESYLATE
     Indication: PARKINSON^S DISEASE
     Route: 048
     Dates: start: 20180720
  6. BAYASPIRIN [Concomitant]
     Active Substance: ASPIRIN
  7. ATORVASTATIN CALCIUM. [Concomitant]
     Active Substance: ATORVASTATIN CALCIUM
  8. SAMSCA [Concomitant]
     Active Substance: TOLVAPTAN
  9. EFIENT [Concomitant]
     Active Substance: PRASUGREL HYDROCHLORIDE

REACTIONS (1)
  - Interventricular septum rupture [Recovered/Resolved]

NARRATIVE: CASE EVENT DATE: 20181204
